FAERS Safety Report 14838842 (Version 1)
Quarter: 2018Q2

REPORT INFORMATION
  Report Type: Report from Study
  Country: DE (occurrence: DE)
  Receive Date: 20180502
  Receipt Date: 20180502
  Transmission Date: 20180711
  Serious: Yes (Hospitalization, Other)
  Sender: FDA-Public Use
  Company Number: PHHY2018DE074154

PATIENT
  Age: 16 Month
  Sex: Male
  Weight: 8 kg

DRUGS (1)
  1. OMNITROPE [Suspect]
     Active Substance: SOMATROPIN
     Indication: PRADER-WILLI SYNDROME
     Dosage: 0.2 MG, QD (5 MG/1.5 ML)
     Route: 058
     Dates: start: 200710

REACTIONS (4)
  - Sleep apnoea syndrome [Recovered/Resolved]
  - Fatigue [Recovered/Resolved]
  - Respiratory arrest [Recovered/Resolved]
  - Snoring [Recovered/Resolved]

NARRATIVE: CASE EVENT DATE: 20080107
